FAERS Safety Report 8596190-X (Version None)
Quarter: 2012Q3

REPORT INFORMATION
  Report Type: 
  Country: None (occurrence: None)
  Receive Date: 20120815
  Receipt Date: 20120811
  Transmission Date: 20120928
  Serious: Yes (Hospitalization)
  Sender: FDA-Public Use
  Company Number: US-GLAXOSMITHKLINE-A0989443A

PATIENT
  Age: 50 Year
  Sex: Male

DRUGS (1)
  1. FLOLAN [Suspect]
     Indication: PRODUCT USED FOR UNKNOWN INDICATION
     Dosage: 108NGKM CONTINUOUS
     Route: 042
     Dates: start: 20010320

REACTIONS (3)
  - NAUSEA [None]
  - ASCITES [None]
  - VOMITING [None]
